FAERS Safety Report 25778072 (Version 1)
Quarter: 2025Q3

REPORT INFORMATION
  Report Type: Spontaneous
  Country: US (occurrence: US)
  Receive Date: 20250909
  Receipt Date: 20250909
  Transmission Date: 20251020
  Serious: Yes (Death, Life-Threatening, Hospitalization, Other)
  Sender: RANBAXY
  Company Number: US-SUN PHARMACEUTICAL INDUSTRIES LTD-2025R1-526369

PATIENT
  Age: 29 Year
  Sex: Male

DRUGS (4)
  1. CARVEDILOL [Interacting]
     Active Substance: CARVEDILOL
     Indication: Substance-induced psychotic disorder
     Dosage: 6.25 MILLIGRAM, BID DAILY
     Route: 048
  2. COLCHICINE [Interacting]
     Active Substance: COLCHICINE
     Indication: Substance-induced psychotic disorder
     Dosage: 0.6 MILLIGRAM, BID DAILY
     Route: 048
  3. COCAINE [Interacting]
     Active Substance: COCAINE
     Indication: Substance-induced psychotic disorder
     Route: 048
  4. METHAMPHETAMINE [Interacting]
     Active Substance: METHAMPHETAMINE
     Indication: Substance-induced psychotic disorder
     Route: 048

REACTIONS (12)
  - Overdose [Fatal]
  - Drug interaction [Fatal]
  - Bradycardia [Fatal]
  - Somnolence [Fatal]
  - Cyanosis [Fatal]
  - Mucosal disorder [Fatal]
  - Hypotension [Fatal]
  - Pulmonary oedema [Fatal]
  - Leukocytosis [Fatal]
  - Multiple organ dysfunction syndrome [Fatal]
  - Mental status changes [Fatal]
  - Physical disability [Fatal]
